FAERS Safety Report 8923133 (Version 1)
Quarter: 2012Q4

REPORT INFORMATION
  Report Type: 
  Country: SE (occurrence: SE)
  Receive Date: 20121123
  Receipt Date: 20121123
  Transmission Date: 20130627
  Serious: Yes (Death, Hospitalization)
  Sender: FDA-Public Use
  Company Number: SE-PFIZER INC-2004063311

PATIENT
  Age: 59 Year
  Sex: Male

DRUGS (2)
  1. IPREN [Suspect]
     Dosage: 2 G, FREQUENCY UNSPECIFIED
     Route: 048
     Dates: start: 20040102, end: 20040103
  2. ETORICOXIB [Suspect]
     Indication: ARTHRITIS
     Dosage: 90 MG, FREQUENCY UNSPECIFIED
     Route: 048
     Dates: start: 20031215, end: 20040101

REACTIONS (4)
  - Sudden death [Fatal]
  - Diabetes mellitus [Unknown]
  - Thrombocytopenia [Unknown]
  - Erythema multiforme [Unknown]
